FAERS Safety Report 25276064 (Version 1)
Quarter: 2025Q2

REPORT INFORMATION
  Report Type: Spontaneous
  Country: US (occurrence: US)
  Receive Date: 20250507
  Receipt Date: 20250507
  Transmission Date: 20250717
  Serious: No
  Sender: ROCHE
  Company Number: US-ROCHE-10000273012

PATIENT
  Age: 79 Year
  Sex: Female

DRUGS (4)
  1. FARICIMAB [Suspect]
     Active Substance: FARICIMAB
     Indication: Diabetic retinal oedema
     Route: 050
  2. PROPARACAINE [Concomitant]
     Active Substance: PROPARACAINE
     Route: 061
  3. LIDOCAINE [Concomitant]
     Active Substance: LIDOCAINE
     Route: 057
  4. POVIDONE-IODINE [Concomitant]
     Active Substance: POVIDONE-IODINE
     Route: 061

REACTIONS (1)
  - Uveitis [Recovered/Resolved]
